FAERS Safety Report 17148683 (Version 2)
Quarter: 2020Q1

REPORT INFORMATION
  Report Type: Report from Study
  Country: FR (occurrence: FR)
  Receive Date: 20191213
  Receipt Date: 20200127
  Transmission Date: 20200409
  Serious: Yes (Hospitalization)
  Sender: FDA-Public Use
  Company Number: FR-ROCHE-2490689

PATIENT
  Age: 64 Year
  Sex: Male

DRUGS (7)
  1. RUCAPARIB [Suspect]
     Active Substance: RUCAPARIB
     Route: 048
     Dates: start: 20191017, end: 20191107
  2. RUCAPARIB [Suspect]
     Active Substance: RUCAPARIB
     Route: 048
     Dates: start: 20190925, end: 20191017
  3. RUCAPARIB [Suspect]
     Active Substance: RUCAPARIB
     Dosage: (CUMULATIVE DOSE OF 68200 MG)
     Route: 048
     Dates: start: 20191107, end: 20191126
  4. ATEZOLIZUMAB. [Suspect]
     Active Substance: ATEZOLIZUMAB
     Route: 042
     Dates: start: 20191017
  5. RUCAPARIB [Suspect]
     Active Substance: RUCAPARIB
     Indication: PROSTATE CANCER METASTATIC
     Route: 048
     Dates: start: 20190905, end: 20190925
  6. ATEZOLIZUMAB. [Suspect]
     Active Substance: ATEZOLIZUMAB
     Indication: PROSTATE CANCER METASTATIC
     Route: 042
     Dates: start: 20190925
  7. ATEZOLIZUMAB. [Suspect]
     Active Substance: ATEZOLIZUMAB
     Dosage: (CUMULATIVE DOSE OF 3600 MG)
     Route: 042
     Dates: start: 20191126

REACTIONS (1)
  - Anaemia [Recovered/Resolved]

NARRATIVE: CASE EVENT DATE: 20191122
